FAERS Safety Report 14629872 (Version 1)
Quarter: 2018Q1

REPORT INFORMATION
  Report Type: Spontaneous
  Country: US (occurrence: US)
  Receive Date: 20180313
  Receipt Date: 20180313
  Transmission Date: 20180509
  Serious: No
  Sender: FDA-Public Use
  Company Number: US-JNJFOC-20180300721

PATIENT
  Sex: Female
  Weight: 48.99 kg

DRUGS (1)
  1. AXERT [Suspect]
     Active Substance: ALMOTRIPTAN MALATE
     Indication: MIGRAINE
     Dosage: FROM 3 OR 4 YEARS
     Route: 048

REACTIONS (2)
  - Product supply issue [Not Recovered/Not Resolved]
  - Migraine [Not Recovered/Not Resolved]
